FAERS Safety Report 9559554 (Version 1)
Quarter: 2013Q3

REPORT INFORMATION
  Report Type: Spontaneous
  Country: US (occurrence: None)
  Receive Date: 20130913
  Receipt Date: 20130913
  Transmission Date: 20140515
  Serious: Yes (Other)
  Sender: FDA-Public Use
  Company Number: 1000044437

PATIENT
  Age: 67 Year
  Sex: Female

DRUGS (4)
  1. DALIRESP [Suspect]
     Indication: CHRONIC OBSTRUCTIVE PULMONARY DISEASE
     Route: 048
     Dates: start: 201211, end: 201212
  2. SPIRIVA (TIOTROPIUM BROMIDE) (TIOTROPIUM BROMIDE0 [Concomitant]
  3. ALBUTEROL (ALBUTEROL) (ALBUTEROL) [Concomitant]
  4. SYMBICORT (BUDESONIDE W/FORMOTEROL FUMARATE) (BUDESONIDE W/FORMOTEROL FUMARATE) [Concomitant]

REACTIONS (3)
  - Abdominal discomfort [None]
  - Diarrhoea [None]
  - Occult blood positive [None]
